FAERS Safety Report 12782247 (Version 1)
Quarter: 2016Q3

REPORT INFORMATION
  Report Type: Spontaneous
  Country: US (occurrence: US)
  Receive Date: 20160927
  Receipt Date: 20160927
  Transmission Date: 20161109
  Serious: Yes (Other)
  Sender: FDA-Public Use
  Company Number: US-BEH-200711579

PATIENT
  Age: 76 Year
  Sex: Male
  Weight: 94.35 kg

DRUGS (6)
  1. CARIMUNE NF [Suspect]
     Active Substance: HUMAN IMMUNOGLOBULIN G
     Indication: CHRONIC INFLAMMATORY DEMYELINATING POLYRADICULONEUROPATHY
     Dosage: DAILY DOSE QUANTITY: 36, DAILY DOSE UNIT: G
     Route: 042
     Dates: start: 20061113, end: 20061113
  2. CARIMUNE NF [Suspect]
     Active Substance: HUMAN IMMUNOGLOBULIN G
     Dosage: DAILY DOSE QUANTITY: 42, DAILY DOSE UNIT: G
     Route: 042
     Dates: start: 20061114, end: 20061115
  3. CARIMUNE NF [Suspect]
     Active Substance: HUMAN IMMUNOGLOBULIN G
     Route: 042
  4. CARIMUNE NF [Suspect]
     Active Substance: HUMAN IMMUNOGLOBULIN G
     Dosage: DAILY DOSE QUANTITY: 36, DAILY DOSE UNIT: G
     Route: 042
     Dates: start: 20071116, end: 20071117
  5. COUMADIN [Concomitant]
     Active Substance: WARFARIN SODIUM
     Indication: ATRIAL FIBRILLATION
  6. CARIMUNE NF [Suspect]
     Active Substance: HUMAN IMMUNOGLOBULIN G
     Route: 042

REACTIONS (2)
  - Renal failure [Recovered/Resolved]
  - Blood creatinine increased [Recovered/Resolved]

NARRATIVE: CASE EVENT DATE: 20061122
